FAERS Safety Report 7634574-4 (Version None)
Quarter: 2011Q3

REPORT INFORMATION
  Report Type: 
  Country: None (occurrence: None)
  Receive Date: 20110725
  Receipt Date: 20110721
  Transmission Date: 20111222
  Serious: Yes (Life-Threatening, Hospitalization, Other)
  Sender: FDA-Public Use
  Company Number: JP-PFIZER INC-2011115684

PATIENT
  Age: 65 Year
  Sex: Male
  Weight: 62 kg

DRUGS (5)
  1. LOXONIN [Concomitant]
     Indication: INTERVERTEBRAL DISC DISORDER
     Dosage: UNK
     Route: 062
     Dates: start: 20110419
  2. LYRICA [Suspect]
     Indication: INTERVERTEBRAL DISC DISORDER
     Dosage: 150 MG/DAY
     Route: 048
     Dates: start: 20110419, end: 20110520
  3. CELECOXIB [Concomitant]
     Indication: INTERVERTEBRAL DISC DISORDER
     Dosage: 200 MG/DAY
     Route: 048
     Dates: start: 20110419, end: 20110525
  4. FAMOTIDINE [Concomitant]
     Indication: PROPHYLAXIS
     Dosage: 10 MG, 2X/DAY
     Route: 048
     Dates: start: 20110419, end: 20110525
  5. LYRICA [Suspect]
     Indication: BACK PAIN

REACTIONS (8)
  - FALL [None]
  - ENCEPHALOPATHY [None]
  - DYSPNOEA [None]
  - DIZZINESS [None]
  - SOMNOLENCE [None]
  - TINNITUS [None]
  - NEOPLASM MALIGNANT [None]
  - DECREASED APPETITE [None]
